FAERS Safety Report 8583035-7 (Version None)
Quarter: 2012Q3

REPORT INFORMATION
  Report Type: 
  Country: None (occurrence: None)
  Receive Date: 20120809
  Receipt Date: 20120726
  Transmission Date: 20120928
  Serious: Yes (Death)
  Sender: FDA-Public Use
  Company Number: JP-NAPPMUNDI-MAG-2012-0002248

PATIENT
  Age: 55 Year
  Sex: Female

DRUGS (2)
  1. OXYCODONE HCL [Suspect]
     Indication: CANCER PAIN
     Dosage: 20 MG, DAILY
     Route: 042
     Dates: start: 20120713, end: 20120714
  2. OXYCODONE HCL [Suspect]
     Indication: CANCER PAIN
     Dosage: 40 MG, DAILY

REACTIONS (1)
  - URETERIC CANCER [None]
